FAERS Safety Report 18053592 (Version 1)
Quarter: 2020Q3

REPORT INFORMATION
  Report Type: Spontaneous
  Country: ES (occurrence: ES)
  Receive Date: 20200722
  Receipt Date: 20200722
  Transmission Date: 20201103
  Serious: Yes (Other)
  Sender: FDA-Public Use
  Company Number: ES-AUROBINDO-AUR-APL-2020-036300

PATIENT
  Age: 77 Year
  Sex: Female

DRUGS (1)
  1. MOXIFLOXACIN 400MG [Suspect]
     Active Substance: MOXIFLOXACIN
     Indication: PNEUMONIA PNEUMOCOCCAL
     Dosage: 400 MILLIGRAM, ONCE A DAY
     Route: 065

REACTIONS (2)
  - Pigment dispersion syndrome [Recovering/Resolving]
  - Iridocyclitis [Recovering/Resolving]
